FAERS Safety Report 17434819 (Version 9)
Quarter: 2024Q1

REPORT INFORMATION
  Report Type: Report from Study
  Country: AT (occurrence: AT)
  Receive Date: 20200219
  Receipt Date: 20240312
  Transmission Date: 20240410
  Serious: Yes (Hospitalization)
  Sender: FDA-Public Use
  Company Number: AT-ROCHE-2188893

PATIENT
  Age: 79 Year
  Sex: Female
  Weight: 48 kg

DRUGS (114)
  1. FEMARA [Suspect]
     Active Substance: LETROZOLE
     Indication: HER2 positive breast cancer
     Dosage: 2.5 MG, QD
     Route: 048
     Dates: start: 20181029, end: 20190613
  2. FEMARA [Suspect]
     Active Substance: LETROZOLE
     Indication: Breast cancer metastatic
  3. FEMARA [Suspect]
     Active Substance: LETROZOLE
     Indication: HER2 positive breast cancer
  4. LETROZOLE [Suspect]
     Active Substance: LETROZOLE
     Indication: Breast cancer metastatic
     Dosage: 2.5 MG, QD
     Route: 048
     Dates: start: 20181029, end: 20190613
  5. FULVESTRANT [Suspect]
     Active Substance: FULVESTRANT
     Indication: Breast cancer
     Dosage: 500 MG, Q4W
     Route: 030
     Dates: start: 20190919, end: 20191112
  6. FULVESTRANT [Suspect]
     Active Substance: FULVESTRANT
     Indication: Breast cancer metastatic
  7. FULVESTRANT [Suspect]
     Active Substance: FULVESTRANT
     Indication: HER2 positive breast cancer
  8. TAMOXIFEN [Suspect]
     Active Substance: TAMOXIFEN
     Indication: Breast cancer metastatic
     Dosage: 20 MG
     Route: 048
     Dates: start: 20190819, end: 20190827
  9. PACLITAXEL [Suspect]
     Active Substance: PACLITAXEL
     Indication: Breast cancer metastatic
     Dosage: 113.69 MG, QW
     Route: 042
     Dates: start: 20180810, end: 20180914
  10. PACLITAXEL [Suspect]
     Active Substance: PACLITAXEL
     Indication: HER2 positive breast cancer
     Dosage: 142.11 MG, QW (MOST RECENT DOSE PRIOR TO THE EVENT: 19/OCT/2018)
     Route: 042
     Dates: start: 20180928, end: 20181005
  11. HERCEPTIN [Suspect]
     Active Substance: TRASTUZUMAB
     Indication: Breast cancer metastatic
     Dosage: MOST RECENT DOSE PRIOR TO THE EVENT: 19/AUG/2019
     Route: 042
     Dates: start: 20180810, end: 20180810
  12. HERCEPTIN [Suspect]
     Active Substance: TRASTUZUMAB
     Indication: HER2 positive breast cancer
     Dosage: 384 MG, TIW (MOST RECENT DOSE PRIOR TO THE EVENT:19/AUG/2019)
     Route: 042
     Dates: start: 20180810
  13. HERCEPTIN [Suspect]
     Active Substance: TRASTUZUMAB
     Dosage: 600 MG, TIW
     Route: 058
     Dates: start: 20181109, end: 20190520
  14. HERCEPTIN [Suspect]
     Active Substance: TRASTUZUMAB
     Route: 058
     Dates: start: 20190819, end: 20190909
  15. PERJETA [Suspect]
     Active Substance: PERTUZUMAB
     Indication: HER2 positive breast cancer
     Dosage: MOST RECENT DOSE PRIOR TO THE EVENT: 31/AUG/2018
     Route: 042
     Dates: start: 20180810, end: 20180810
  16. PERJETA [Suspect]
     Active Substance: PERTUZUMAB
     Indication: Breast cancer metastatic
     Dosage: 420 MG
     Route: 042
     Dates: start: 20180831, end: 20180831
  17. PERJETA [Suspect]
     Active Substance: PERTUZUMAB
     Indication: HER2 positive breast cancer
  18. PACLITAXEL [Suspect]
     Active Substance: PACLITAXEL
     Indication: HER2 positive breast cancer
     Dosage: 142.11 MG, QW (MOST RECENT DOSE PRIOR TO THE EVENT: 19/OCT/2018)
     Route: 042
     Dates: start: 20180928, end: 20181005
  19. PACLITAXEL [Suspect]
     Active Substance: PACLITAXEL
     Indication: Breast cancer metastatic
  20. NOLVADEX [Suspect]
     Active Substance: TAMOXIFEN CITRATE
     Indication: HER2 positive breast cancer
     Dosage: 20 MG (OTHER)
     Route: 048
     Dates: start: 20190819, end: 20190919
  21. KADCYLA [Suspect]
     Active Substance: ADO-TRASTUZUMAB EMTANSINE
     Indication: Breast cancer
     Dosage: 154 MG, TIW
     Route: 042
     Dates: start: 20190704, end: 20190704
  22. KADCYLA [Suspect]
     Active Substance: ADO-TRASTUZUMAB EMTANSINE
     Indication: Breast cancer metastatic
  23. KADCYLA [Suspect]
     Active Substance: ADO-TRASTUZUMAB EMTANSINE
     Indication: HER2 positive breast cancer
  24. IBRANCE [Suspect]
     Active Substance: PALBOCICLIB
     Indication: Breast cancer metastatic
     Dosage: 125 MG
     Route: 048
     Dates: start: 20190919, end: 20191018
  25. IBRANCE [Suspect]
     Active Substance: PALBOCICLIB
     Indication: HER2 positive breast cancer
  26. KYTRIL [Concomitant]
     Active Substance: GRANISETRON HYDROCHLORIDE
     Indication: Product used for unknown indication
     Dosage: UNK
     Route: 065
     Dates: start: 20180810, end: 20180914
  27. XGEVA [Concomitant]
     Active Substance: DENOSUMAB
     Indication: HER2 positive breast cancer
     Dosage: MOST RECENT DOSE PRIOR TO AE 25/FEB/2019
     Route: 058
     Dates: start: 20180817
  28. PASPERTIN [Concomitant]
     Indication: Product used for unknown indication
     Dosage: 3350
     Route: 065
     Dates: start: 20180831, end: 20180915
  29. DEXABENE [Concomitant]
     Indication: Product used for unknown indication
     Dosage: UNK
     Route: 065
     Dates: start: 20180810, end: 20180914
  30. RANITIDINE HYDROCHLORIDE [Concomitant]
     Active Substance: RANITIDINE HYDROCHLORIDE
     Indication: Product used for unknown indication
     Dosage: UNK
     Route: 065
     Dates: start: 20180810, end: 20180914
  31. VITAMINS WITH MINERALS [Concomitant]
     Active Substance: MINERALS\VITAMINS
     Indication: Product used for unknown indication
     Dosage: UNK
     Route: 065
     Dates: start: 20180817, end: 20190615
  32. TEMESTA [Concomitant]
     Indication: Product used for unknown indication
     Dosage: UNK
     Route: 065
  33. DIMETHINDENE MALEATE [Concomitant]
     Active Substance: DIMETHINDENE MALEATE
     Indication: Product used for unknown indication
     Dosage: UNK
     Route: 065
     Dates: start: 20180810, end: 20190915
  34. POLYETHYLENE GLYCOL 3350\POTASSIUM CHLORIDE\SODIUM BICARBONATE\SODIUM [Concomitant]
     Active Substance: POLYETHYLENE GLYCOL 3350\POTASSIUM CHLORIDE\SODIUM BICARBONATE\SODIUM CHLORIDE
     Indication: Constipation
     Dosage: UNK
     Route: 065
     Dates: start: 20180831, end: 20180915
  35. POLYETHYLENE GLYCOL 3350\POTASSIUM CHLORIDE\SODIUM BICARBONATE\SODIUM [Concomitant]
     Active Substance: POLYETHYLENE GLYCOL 3350\POTASSIUM CHLORIDE\SODIUM BICARBONATE\SODIUM CHLORIDE
     Dosage: UNK
     Route: 065
     Dates: start: 20191115
  36. CALCIUM CHLORIDE\SODIUM CHLORIDE\SODIUM PHOSPHATE, DIBASIC, ANHYDROUS\ [Concomitant]
     Active Substance: CALCIUM CHLORIDE\SODIUM CHLORIDE\SODIUM PHOSPHATE, DIBASIC, ANHYDROUS\SODIUM PHOSPHATE, MONOBASIC, A
     Indication: Mucosal inflammation
     Dosage: UNK
     Route: 065
     Dates: start: 20180921
  37. MEFENAMIC ACID [Concomitant]
     Active Substance: MEFENAMIC ACID
     Indication: Arthralgia
     Dosage: UNK
     Route: 065
     Dates: start: 20180914, end: 20190615
  38. MEFENAMIC ACID [Concomitant]
     Active Substance: MEFENAMIC ACID
     Dosage: UNK
     Route: 065
     Dates: end: 20190615
  39. MEFENAMIC ACID [Concomitant]
     Active Substance: MEFENAMIC ACID
     Route: 065
     Dates: end: 20190615
  40. MEFENAMIC ACID [Concomitant]
     Active Substance: MEFENAMIC ACID
     Route: 065
     Dates: end: 20190615
  41. CIPROFLOXACIN [Concomitant]
     Active Substance: CIPROFLOXACIN
     Indication: Gastroenteritis radiation
     Dosage: UNK
     Route: 065
     Dates: start: 20181118
  42. TRAZODONE HYDROCHLORIDE [Concomitant]
     Active Substance: TRAZODONE HYDROCHLORIDE
     Indication: Product used for unknown indication
     Dosage: UNK (DRUG REPORTED AS TRITTICO RET)
     Route: 065
  43. TRAZODONE HYDROCHLORIDE [Concomitant]
     Active Substance: TRAZODONE HYDROCHLORIDE
     Dosage: DRUG REPORTED AS TRITTICO RET.
     Route: 065
  44. TRAZODONE HYDROCHLORIDE [Concomitant]
     Active Substance: TRAZODONE HYDROCHLORIDE
     Dosage: DRUG REPORTED AS TRITTICO RET.
     Route: 065
  45. AVELOX [Concomitant]
     Active Substance: MOXIFLOXACIN HYDROCHLORIDE
     Indication: Osteonecrosis of jaw
     Dosage: UNK
     Route: 065
     Dates: start: 20190919, end: 20191101
  46. ANTIFLAT [Concomitant]
     Indication: Product used for unknown indication
     Dosage: UNK
     Route: 065
     Dates: start: 20181126
  47. ANTIFLAT [Concomitant]
     Dosage: UNK
     Route: 065
  48. ANTIFLAT [Concomitant]
     Route: 065
  49. ANTIFLAT [Concomitant]
     Route: 065
  50. PANTOPRAZOLE SODIUM [Concomitant]
     Active Substance: PANTOPRAZOLE SODIUM
     Indication: Abdominal pain upper
     Dosage: UNK
     Route: 065
  51. PANTOPRAZOLE SODIUM [Concomitant]
     Active Substance: PANTOPRAZOLE SODIUM
     Dosage: UNK
     Route: 065
     Dates: start: 20181109, end: 20191101
  52. PANTOPRAZOLE SODIUM [Concomitant]
     Active Substance: PANTOPRAZOLE SODIUM
     Route: 065
  53. PANTOPRAZOLE SODIUM [Concomitant]
     Active Substance: PANTOPRAZOLE SODIUM
     Route: 065
  54. LOPERAMIDE HYDROCHLORIDE [Concomitant]
     Active Substance: LOPERAMIDE HYDROCHLORIDE
     Indication: Diarrhoea
     Dosage: UNK
     Route: 065
     Dates: start: 20181127
  55. LOPERAMIDE HYDROCHLORIDE [Concomitant]
     Active Substance: LOPERAMIDE HYDROCHLORIDE
     Indication: Diarrhoea
  56. MYCOSTATIN [Concomitant]
     Active Substance: NYSTATIN
     Indication: Mucosal inflammation
     Dosage: UNK
     Route: 065
     Dates: start: 20190819
  57. MYCOSTATIN [Concomitant]
     Active Substance: NYSTATIN
     Dosage: UNK
     Route: 065
     Dates: start: 20191104, end: 20191110
  58. DEXIBUPROFEN [Concomitant]
     Active Substance: DEXIBUPROFEN
     Indication: Osteonecrosis of jaw
     Dosage: UNK
     Route: 065
     Dates: start: 20190725, end: 20191015
  59. DEXIBUPROFEN [Concomitant]
     Active Substance: DEXIBUPROFEN
     Dosage: UNK
     Route: 065
  60. DEXIBUPROFEN [Concomitant]
     Active Substance: DEXIBUPROFEN
     Route: 065
  61. DEXIBUPROFEN [Concomitant]
     Active Substance: DEXIBUPROFEN
     Route: 065
  62. NOVALGIN [Concomitant]
     Indication: Osteonecrosis of jaw
     Dosage: 20 MG
     Route: 048
     Dates: start: 20181126, end: 20191103
  63. NOVALGIN [Concomitant]
     Dosage: UNK
     Route: 065
     Dates: start: 20191104
  64. FENTANYL [Concomitant]
     Active Substance: FENTANYL\FENTANYL CITRATE
     Indication: Osteonecrosis of jaw
     Dosage: UNK
     Route: 065
  65. FENTANYL [Concomitant]
     Active Substance: FENTANYL\FENTANYL CITRATE
     Dosage: ONGOING = CHECKED
     Route: 065
     Dates: start: 20191105
  66. FENTANYL [Concomitant]
     Active Substance: FENTANYL\FENTANYL CITRATE
     Route: 065
  67. FENTANYL [Concomitant]
     Active Substance: FENTANYL\FENTANYL CITRATE
     Route: 065
  68. LANSOBENE [Concomitant]
     Indication: Product used for unknown indication
     Dosage: UNK
     Route: 065
  69. LANSOBENE [Concomitant]
     Dosage: ONGOING = CHECKED
     Route: 065
     Dates: start: 20191104
  70. LANSOBENE [Concomitant]
     Route: 065
  71. LANSOBENE [Concomitant]
     Route: 065
  72. BUTYLSCOPOLAMINE BROMIDE [Concomitant]
     Active Substance: BUTYLSCOPOLAMINE BROMIDE
     Indication: Product used for unknown indication
     Dosage: UNK
     Route: 065
  73. BUTYLSCOPOLAMINE BROMIDE [Concomitant]
     Active Substance: BUTYLSCOPOLAMINE BROMIDE
     Dosage: ONGOING = NOT CHECKED
     Route: 065
     Dates: start: 20191104, end: 20191111
  74. BUTYLSCOPOLAMINE BROMIDE [Concomitant]
     Active Substance: BUTYLSCOPOLAMINE BROMIDE
     Route: 065
  75. BUTYLSCOPOLAMINE BROMIDE [Concomitant]
     Active Substance: BUTYLSCOPOLAMINE BROMIDE
     Route: 065
  76. LASIX [Concomitant]
     Active Substance: FUROSEMIDE
     Indication: Oedema peripheral
     Dosage: UNK
     Route: 065
  77. LASIX [Concomitant]
     Active Substance: FUROSEMIDE
     Dosage: UNK
     Route: 065
     Dates: start: 20191106, end: 20191115
  78. FUROSEMIDE\SPIRONOLACTONE [Concomitant]
     Active Substance: FUROSEMIDE\SPIRONOLACTONE
     Indication: Oedema peripheral
     Dosage: UNK
     Route: 065
  79. FUROSEMIDE\SPIRONOLACTONE [Concomitant]
     Active Substance: FUROSEMIDE\SPIRONOLACTONE
     Dosage: ONGOING = CHECKED
     Route: 065
     Dates: start: 20191109
  80. FUROSEMIDE\SPIRONOLACTONE [Concomitant]
     Active Substance: FUROSEMIDE\SPIRONOLACTONE
     Route: 065
  81. FUROSEMIDE\SPIRONOLACTONE [Concomitant]
     Active Substance: FUROSEMIDE\SPIRONOLACTONE
     Route: 065
  82. LOVENOX [Concomitant]
     Active Substance: ENOXAPARIN SODIUM
     Indication: Product used for unknown indication
     Dosage: UNK
     Route: 065
  83. LOVENOX [Concomitant]
     Active Substance: ENOXAPARIN SODIUM
     Dosage: ONGOING = NOT CHECKED
     Route: 065
     Dates: start: 20191104, end: 20191113
  84. LOVENOX [Concomitant]
     Active Substance: ENOXAPARIN SODIUM
     Route: 065
  85. LOVENOX [Concomitant]
     Active Substance: ENOXAPARIN SODIUM
     Route: 065
  86. GUTTALAX [Concomitant]
     Indication: Product used for unknown indication
     Dosage: UNK
     Route: 065
  87. GUTTALAX [Concomitant]
     Dosage: ONGOING = CHECKED
     Route: 065
     Dates: start: 20191115
  88. GUTTALAX [Concomitant]
     Route: 065
  89. GUTTALAX [Concomitant]
     Route: 065
  90. ALBUMIN HUMAN [Concomitant]
     Active Substance: ALBUMIN HUMAN
     Indication: Ascites
     Dosage: UNK
     Route: 065
  91. ALBUMIN HUMAN [Concomitant]
     Active Substance: ALBUMIN HUMAN
     Dosage: UNK
     Route: 065
     Dates: start: 20191108, end: 20191110
  92. ALBUMIN HUMAN [Concomitant]
     Active Substance: ALBUMIN HUMAN
     Route: 065
  93. ALBUMIN HUMAN [Concomitant]
     Active Substance: ALBUMIN HUMAN
     Route: 065
  94. DEXAMETHASONE [Concomitant]
     Active Substance: DEXAMETHASONE
     Indication: Product used for unknown indication
     Dosage: UNK
     Route: 005
     Dates: start: 20191115
  95. DEXAMETHASONE [Concomitant]
     Active Substance: DEXAMETHASONE
     Dosage: UNK
     Route: 065
  96. KONAKION [Concomitant]
     Active Substance: PHYTONADIONE
     Indication: Product used for unknown indication
     Dosage: UNK
     Route: 065
     Dates: start: 20191115
  97. KONAKION [Concomitant]
     Active Substance: PHYTONADIONE
     Dosage: UNK
     Route: 065
  98. KONAKION [Concomitant]
     Active Substance: PHYTONADIONE
     Route: 065
  99. KONAKION [Concomitant]
     Active Substance: PHYTONADIONE
     Route: 065
  100. CALCIUM PHOSPHATE [Concomitant]
     Active Substance: CALCIUM PHOSPHATE
     Indication: Mucosal inflammation
     Dosage: UNK
     Route: 065
     Dates: start: 20180921
  101. ONDANSETRON HYDROCHLORIDE [Concomitant]
     Active Substance: ONDANSETRON HYDROCHLORIDE
     Indication: Product used for unknown indication
     Dosage: UNK
     Route: 065
     Dates: start: 20180817, end: 20180907
  102. RANITIDINE HYDROCHLORIDE [Concomitant]
     Active Substance: RANITIDINE HYDROCHLORIDE
     Indication: Product used for unknown indication
     Dosage: UNK
     Route: 065
     Dates: start: 20180810, end: 20180914
  103. POLYETHYLENE GLYCOLS [Concomitant]
     Active Substance: POLYETHYLENE GLYCOLS
     Indication: Constipation
     Dosage: 3350
     Route: 065
     Dates: start: 20180831, end: 20180915
  104. POLYETHYLENE GLYCOLS [Concomitant]
     Active Substance: POLYETHYLENE GLYCOLS
     Dosage: UNK
     Route: 065
     Dates: start: 20191115
  105. GRANISETRON [Concomitant]
     Active Substance: GRANISETRON
     Indication: Product used for unknown indication
     Dosage: UNK
     Route: 065
     Dates: start: 20180810, end: 20180914
  106. DEXAMETHASONE SODIUM PHOSPHATE [Concomitant]
     Active Substance: DEXAMETHASONE PHOSPHATE\DEXAMETHASONE SODIUM PHOSPHATE
     Indication: Product used for unknown indication
     Dosage: UNK
     Route: 065
     Dates: start: 20180810, end: 20180914
  107. LAFENE [Concomitant]
     Indication: Product used for unknown indication
     Dosage: UNK (ONGOING = NOT CHECKED)
     Route: 065
     Dates: end: 20191115
  108. LAFENE [Concomitant]
     Dosage: ONGOING = NOT CHECKED
     Route: 065
     Dates: end: 20191115
  109. LAFENE [Concomitant]
     Dosage: ONGOING = NOT CHECKED
     Route: 065
     Dates: end: 20191115
  110. LACTULOSE [Concomitant]
     Active Substance: LACTULOSE
     Indication: Product used for unknown indication
     Dosage: ONGOING = NOT CHECKED
     Route: 065
     Dates: start: 20191121
  111. DONTISOLON [Concomitant]
     Indication: Product used for unknown indication
     Dosage: UNK
     Route: 065
  112. HYDROGEN [Concomitant]
     Active Substance: HYDROGEN
     Indication: Product used for unknown indication
     Dosage: UNK
     Route: 065
  113. FULVESTRANT [Concomitant]
     Active Substance: FULVESTRANT
     Indication: Product used for unknown indication
     Route: 065
  114. ZOFRAN [Concomitant]
     Active Substance: ONDANSETRON HYDROCHLORIDE
     Indication: Product used for unknown indication
     Route: 065

REACTIONS (5)
  - Infection [Recovered/Resolved]
  - Hypertension [Unknown]
  - Nausea [Not Recovered/Not Resolved]
  - Nausea [Recovered/Resolved]
  - Dyspnoea [Not Recovered/Not Resolved]

NARRATIVE: CASE EVENT DATE: 20180810
